FAERS Safety Report 9165289 (Version 1)
Quarter: 2013Q1

REPORT INFORMATION
  Report Type: Spontaneous
  Country: JP (occurrence: JP)
  Receive Date: 20130315
  Receipt Date: 20130315
  Transmission Date: 20140127
  Serious: Yes (Death)
  Sender: FDA-Public Use
  Company Number: JP-ELI_LILLY_AND_COMPANY-JP201112007190

PATIENT
  Age: 75 Year
  Sex: Female

DRUGS (3)
  1. FORTEO [Suspect]
     Dosage: UNK
     Route: 058
     Dates: start: 20111213
  2. BAYASPIRIN [Concomitant]
     Dosage: UNK
     Route: 048
  3. CIBENOL [Concomitant]
     Dosage: UNK
     Route: 048

REACTIONS (6)
  - Death [Fatal]
  - Chest discomfort [Recovering/Resolving]
  - Abdominal discomfort [Recovered/Resolved]
  - Feeling abnormal [Unknown]
  - Decreased appetite [Recovered/Resolved]
  - Weight decreased [Unknown]
